FAERS Safety Report 7254501-1 (Version None)
Quarter: 2011Q1

REPORT INFORMATION
  Report Type: 
  Country: None (occurrence: None)
  Receive Date: 20110129
  Receipt Date: 20100426
  Transmission Date: 20110831
  Serious: Yes (Hospitalization)
  Sender: FDA-Public Use
  Company Number: US-ABBOTT-10P-163-0641190-00

PATIENT
  Sex: Female

DRUGS (18)
  1. HUMIRA [Suspect]
     Indication: RHEUMATOID ARTHRITIS
     Dates: start: 20030101
  2. RANITIDINE [Concomitant]
     Indication: PROPHYLAXIS
  3. VYTORIN [Concomitant]
     Indication: BLOOD CHOLESTEROL INCREASED
  4. ASPIRIN [Concomitant]
     Indication: PRODUCT USED FOR UNKNOWN INDICATION
  5. NEURONTIN [Concomitant]
     Indication: NEUROPATHY PERIPHERAL
  6. MS CONTIN [Concomitant]
     Indication: RHEUMATOID ARTHRITIS
     Dates: start: 20020101
  7. RANITIDINE [Concomitant]
     Indication: ABDOMINAL DISCOMFORT
  8. PREMARIN [Concomitant]
     Indication: PRODUCT USED FOR UNKNOWN INDICATION
  9. FUROSEMIDE [Concomitant]
     Indication: NEUROPATHY PERIPHERAL
  10. MS CONTIN [Concomitant]
     Indication: SURGERY
  11. MORPHINE PUMP [Concomitant]
     Indication: SURGERY
  12. FUROSEMIDE [Concomitant]
     Indication: SWELLING
  13. COMBIVENT [Concomitant]
     Indication: ASTHMA
     Dosage: RESCUE INHALER
     Route: 055
  14. EFFEXOR [Concomitant]
     Indication: ANXIETY
  15. FENOFIBRATE [Concomitant]
     Indication: BLOOD CHOLESTEROL INCREASED
  16. LISINOPRIL [Concomitant]
     Indication: HYPERTENSION
  17. PREDNISONE [Concomitant]
     Indication: RHEUMATOID ARTHRITIS
  18. MORPHINE PUMP [Concomitant]
     Indication: RHEUMATOID ARTHRITIS
     Dosage: PUMP
     Route: 050
     Dates: start: 20020101

REACTIONS (3)
  - RESPIRATORY TRACT INFECTION VIRAL [None]
  - BLOOD MAGNESIUM DECREASED [None]
  - DYSPNOEA [None]
